FAERS Safety Report 9065681 (Version 1)
Quarter: 2013Q1

REPORT INFORMATION
  Report Type: Report from Study
  Country: US (occurrence: US)
  Receive Date: 20130130
  Receipt Date: 20130130
  Transmission Date: 20140127
  Serious: No
  Sender: FDA-Public Use
  Company Number: US-ABBOTT-12P-163-0977632-00

PATIENT
  Age: 23 Year
  Sex: Female

DRUGS (6)
  1. HUMIRA [Suspect]
     Indication: PSORIASIS
     Dates: start: 20120423
  2. ALBUTEROL [Concomitant]
     Indication: ASTHMA
  3. MULTIVITAMIN [Concomitant]
     Indication: PRODUCT USED FOR UNKNOWN INDICATION
     Dosage: DAILY
  4. ADVAIR [Concomitant]
     Indication: ASTHMA
  5. FIORICET [Concomitant]
     Indication: HEADACHE
  6. AMITRIPTYLINE [Concomitant]
     Indication: HEADACHE

REACTIONS (3)
  - Headache [Recovered/Resolved]
  - Sinus headache [Recovering/Resolving]
  - Cough [Recovering/Resolving]
